FAERS Safety Report 17072407 (Version 4)
Quarter: 2020Q1

REPORT INFORMATION
  Report Type: Report from Study
  Country: FR (occurrence: FR)
  Receive Date: 20191125
  Receipt Date: 20200327
  Transmission Date: 20200409
  Serious: Yes (Death, Hospitalization, Other)
  Sender: FDA-Public Use
  Company Number: FR-PFIZER INC-2017457906

PATIENT
  Age: 63 Year
  Sex: Female
  Weight: 80 kg

DRUGS (7)
  1. GLYCOTHYMOLIN [Concomitant]
     Indication: ORAL DISCOMFORT
  2. TRIFLUCAN [Concomitant]
     Active Substance: FLUCONAZOLE
  3. COTAREG [Concomitant]
     Active Substance: HYDROCHLOROTHIAZIDE\VALSARTAN
  4. BISOPROLOL [Concomitant]
     Active Substance: BISOPROLOL
  5. KARDEGIC [Concomitant]
     Active Substance: ASPIRIN DL-LYSINE
  6. SUTENT [Suspect]
     Active Substance: SUNITINIB MALATE
     Indication: RENAL CANCER METASTATIC
     Dosage: 50 MG, CYCLIC (4/6)
     Dates: start: 20160601
  7. SUTENT [Suspect]
     Active Substance: SUNITINIB MALATE
     Dosage: 37.5 MG, CYCLIC (4/6)
     Dates: start: 20160704, end: 20170529

REACTIONS (10)
  - Palmar-plantar erythrodysaesthesia syndrome [Unknown]
  - Mucosal inflammation [Unknown]
  - Urinary tract infection [Unknown]
  - General physical health deterioration [Fatal]
  - Fatigue [Unknown]
  - Decreased appetite [Unknown]
  - Decreased appetite [Unknown]
  - Anaemia [Unknown]
  - Oral discomfort [Unknown]
  - Taste disorder [Unknown]

NARRATIVE: CASE EVENT DATE: 20160607
